FAERS Safety Report 13455317 (Version 2)
Quarter: 2017Q2

REPORT INFORMATION
  Report Type: Spontaneous
  Country: US (occurrence: US)
  Receive Date: 20170419
  Receipt Date: 20170426
  Transmission Date: 20170830
  Serious: Yes (Other)
  Sender: FDA-Public Use
  Company Number: US-PFIZER INC-2017164475

PATIENT
  Age: 50 Year
  Sex: Female
  Weight: 75.29 kg

DRUGS (1)
  1. CRIZOTINIB [Suspect]
     Active Substance: CRIZOTINIB
     Indication: NON-SMALL CELL LUNG CANCER STAGE IV
     Dosage: 250 MG, 2X/DAY
     Dates: start: 20150917

REACTIONS (7)
  - Fatigue [Recovering/Resolving]
  - Neoplasm progression [Unknown]
  - Pneumonia [Unknown]
  - Hypoaesthesia [Unknown]
  - Depression [Unknown]
  - Acne [Unknown]
  - Proteinuria [Unknown]
